FAERS Safety Report 10254753 (Version 2)
Quarter: 2014Q2

REPORT INFORMATION
  Report Type: Spontaneous
  Country: AT (occurrence: AT)
  Receive Date: 20140624
  Receipt Date: 20140626
  Transmission Date: 20141212
  Serious: Yes (Other)
  Sender: FDA-Public Use
  Company Number: AT-ABBVIE-14P-009-1250828-00

PATIENT
  Age: 40 Year
  Sex: Male

DRUGS (3)
  1. DEPAKINE CHRONO RETARD [Suspect]
     Indication: SCHIZOAFFECTIVE DISORDER
     Route: 048
  2. RISPERIDONE [Suspect]
     Indication: PRODUCT USED FOR UNKNOWN INDICATION
  3. ALL OTHER THERAPEUTIC PRODUCTS [Concomitant]
     Indication: PRODUCT USED FOR UNKNOWN INDICATION

REACTIONS (1)
  - Atonic urinary bladder [Not Recovered/Not Resolved]
